FAERS Safety Report 20096282 (Version 1)
Quarter: 2021Q4

REPORT INFORMATION
  Report Type: Spontaneous
  Country: US (occurrence: None)
  Receive Date: 20211119
  Receipt Date: 20211119
  Transmission Date: 20220304
  Serious: Yes (Hospitalization)
  Sender: FDA-Public Use
  Company Number: None

PATIENT
  Age: 85 Year
  Sex: Male
  Weight: 106.6 kg

DRUGS (2)
  1. XARELTO [Suspect]
     Active Substance: RIVAROXABAN
     Indication: Atrial fibrillation
     Dosage: FREQUENCY : DAILY;?
     Route: 048
     Dates: start: 20210608, end: 20211118
  2. diltiazem 180 mg [Concomitant]
     Dates: start: 20210525

REACTIONS (8)
  - Dyspnoea [None]
  - Respiratory tract congestion [None]
  - Faeces discoloured [None]
  - Constipation [None]
  - Gastrointestinal haemorrhage [None]
  - Dizziness [None]
  - Pneumonia [None]
  - Cardiac failure [None]

NARRATIVE: CASE EVENT DATE: 20211118
